FAERS Safety Report 10794023 (Version 1)
Quarter: 2015Q1

REPORT INFORMATION
  Report Type: Spontaneous
  Country: IN (occurrence: IN)
  Receive Date: 20150213
  Receipt Date: 20150213
  Transmission Date: 20150721
  Serious: Yes (Death, Hospitalization)
  Sender: FDA-Public Use
  Company Number: PHHY2015IN013949

PATIENT
  Age: 80 Year
  Sex: Male

DRUGS (3)
  1. PIPERACILLIN AND TAZOBACTAM [Suspect]
     Active Substance: PIPERACILLIN SODIUM\TAZOBACTAM SODIUM
     Indication: ANTIBIOTIC THERAPY
     Route: 065
  2. LINEZOLID. [Suspect]
     Active Substance: LINEZOLID
     Indication: ABSCESS LIMB
     Dosage: 600 MG, BID
     Route: 065
  3. METRONIDAZOLE. [Suspect]
     Active Substance: METRONIDAZOLE
     Indication: ANTIBIOTIC THERAPY
     Route: 065

REACTIONS (8)
  - Pyrexia [Fatal]
  - Enterococcal infection [Fatal]
  - Treatment failure [Fatal]
  - Vomiting [Fatal]
  - Dyspnoea [Fatal]
  - Chest discomfort [Fatal]
  - Pathogen resistance [Fatal]
  - Staphylococcal infection [Unknown]
